FAERS Safety Report 10949636 (Version 1)
Quarter: 2015Q1

REPORT INFORMATION
  Report Type: Spontaneous
  Country: US (occurrence: US)
  Receive Date: 20150324
  Receipt Date: 20150324
  Transmission Date: 20150721
  Serious: Yes (Death, Hospitalization)
  Sender: FDA-Public Use
  Company Number: US-TEVA-548859USA

PATIENT

DRUGS (1)
  1. QUETIAPINE FUMARATE. [Suspect]
     Active Substance: QUETIAPINE FUMARATE
     Indication: OVERDOSE
     Route: 048

REACTIONS (4)
  - Cardiac arrest [Fatal]
  - Bradycardia [Unknown]
  - Overdose [Fatal]
  - Seizure [Unknown]
